FAERS Safety Report 9915318 (Version 2)
Quarter: 2014Q1

REPORT INFORMATION
  Report Type: Spontaneous
  Country: US (occurrence: US)
  Receive Date: 20140221
  Receipt Date: 20140314
  Transmission Date: 20141002
  Serious: Yes (Life-Threatening, Disabling)
  Sender: FDA-Public Use
  Company Number: US-009507513-1402USA010171

PATIENT
  Age: 63 Year
  Sex: Male

DRUGS (2)
  1. TEMODAR [Suspect]
     Indication: BRAIN NEOPLASM MALIGNANT
     Dosage: 3 OF 100MG CAPSULES AT BEDTIME FOR 5 DAYS OUT OF A 28 DAY CYCLE
     Route: 048
     Dates: start: 20140211
  2. TEMODAR [Suspect]
     Dosage: (120MG + 40 MG) QD
     Route: 048
     Dates: start: 201310

REACTIONS (1)
  - Amnesia [Unknown]
